FAERS Safety Report 11045171 (Version 1)
Quarter: 2015Q2

REPORT INFORMATION
  Report Type: Report from Study
  Country: FR (occurrence: FR)
  Receive Date: 20150417
  Receipt Date: 20150417
  Transmission Date: 20150821
  Serious: Yes (Death, Life-Threatening, Other)
  Sender: FDA-Public Use
  Company Number: FR-ASTRAZENECA-2015SE35798

PATIENT
  Age: 79 Year
  Sex: Male

DRUGS (1)
  1. VANDETANIB. [Suspect]
     Active Substance: VANDETANIB
     Indication: THYROID CANCER METASTATIC
     Route: 048

REACTIONS (4)
  - Hypokalaemia [Unknown]
  - Electrocardiogram QT prolonged [Unknown]
  - Diarrhoea [Unknown]
  - Arrhythmia [Fatal]
